FAERS Safety Report 7750995-3 (Version None)
Quarter: 2011Q3

REPORT INFORMATION
  Report Type: 
  Country: None (occurrence: None)
  Receive Date: 20110829
  Receipt Date: 20100723
  Transmission Date: 20111222
  Serious: Yes (Hospitalization)
  Sender: FDA-Public Use
  Company Number: WAES 1007USA03039

PATIENT
  Age: 51 Year
  Sex: Male

DRUGS (2)
  1. INDERAL [Concomitant]
  2. MAXALT [Suspect]
     Indication: MIGRAINE
     Dosage: 10 MG/PO
     Route: 048
     Dates: start: 20040701

REACTIONS (2)
  - CHEST DISCOMFORT [None]
  - DYSPNOEA [None]
